FAERS Safety Report 9291088 (Version 1)
Quarter: 2013Q2

REPORT INFORMATION
  Report Type: Spontaneous
  Country: US (occurrence: US)
  Receive Date: 20130515
  Receipt Date: 20130515
  Transmission Date: 20140414
  Serious: Yes (Hospitalization, Other)
  Sender: FDA-Public Use
  Company Number: US-ASTRAZENECA-2013SE31749

PATIENT
  Age: 62 Year
  Sex: Female

DRUGS (21)
  1. ARIMIDEX [Suspect]
     Route: 048
  2. PREMPRO [Suspect]
     Indication: MENOPAUSAL SYMPTOMS
     Dosage: 0.3/1.5 MG DAILY
     Route: 048
     Dates: end: 201109
  3. FLONASE [Concomitant]
     Dosage: 50 MCG/ACT 2 SPRAYS IN EACH NOSTRIL NASALLY OONCE A DAY
  4. VITAMIN D [Concomitant]
     Route: 048
  5. FEXOFENADINE HCL [Concomitant]
     Route: 048
  6. AMBIEN [Concomitant]
     Dosage: 10 MG TABLET, 1 TABLET AT BEDTIME AS NEEDED ONCE A DAY
     Route: 048
  7. ALBUTEROL SULFATE [Concomitant]
     Dosage: 108 (90 BASE) MCG/ACT AEROSOL SOLUTION 2 PUFFS AS NEEDED, DISPENSE 2 INHALATION EVERY 4 HRS
     Route: 055
  8. SIMVASTATIN [Concomitant]
     Route: 048
  9. ADVAIR DISKUS [Concomitant]
     Dosage: 250-50 MCG/DOSE AEROSOL POWDER BREATH ACTIVATED, 1 PUFF INHALATION TWICE A DAY
     Route: 055
  10. SINGULAIR [Concomitant]
     Route: 048
  11. LOSARTAN POTASSIUM HCTZ [Concomitant]
     Dosage: 50/12.5 MG TABLET, 2 TABLETS ORALLY ONCE A DAY
     Route: 048
  12. EVISTA [Concomitant]
     Route: 048
  13. ZYRTEC [Concomitant]
  14. METHYLPREDNISONE [Concomitant]
  15. LEVAQUIN [Concomitant]
     Dosage: DAILY
  16. PROVENTIL [Concomitant]
  17. MUSINEX [Concomitant]
     Dosage: PM AS NEEDED
  18. PROAIR [Concomitant]
  19. ZOCOR [Concomitant]
     Dosage: 20 MG EVERY NIGHT AT BEDTIME
  20. IRON [Concomitant]
  21. ANGELIQ [Concomitant]

REACTIONS (10)
  - Intraductal proliferative breast lesion [Recovered/Resolved]
  - Osteopenia [Unknown]
  - Spinal fracture [Unknown]
  - Asthma [Unknown]
  - Seasonal allergy [Unknown]
  - Insomnia [Unknown]
  - Combined hyperlipidaemia [Unknown]
  - Hypertension [Unknown]
  - Hypersensitivity [Unknown]
  - Hot flush [Unknown]
